FAERS Safety Report 11419403 (Version 4)
Quarter: 2017Q1

REPORT INFORMATION
  Report Type: Spontaneous
  Country: US (occurrence: US)
  Receive Date: 20150826
  Receipt Date: 20170316
  Transmission Date: 20170428
  Serious: Yes (Other)
  Sender: FDA-Public Use
  Company Number: US-TEVA-589185ACC

PATIENT
  Age: 1 Month
  Sex: Female
  Weight: 52.21 kg

DRUGS (3)
  1. PARAGARD T 380A [Suspect]
     Active Substance: COPPER
     Indication: CONTRACEPTION
     Route: 015
     Dates: start: 20150626, end: 20150815
  2. BACTRIM [Concomitant]
     Active Substance: SULFAMETHOXAZOLE\TRIMETHOPRIM
     Indication: ARTHROPOD BITE
     Dates: start: 20150808
  3. KEFLEX [Concomitant]
     Active Substance: CEPHALEXIN
     Indication: ARTHROPOD BITE
     Dates: start: 20150808

REACTIONS (3)
  - Device expulsion [Recovered/Resolved]
  - Pregnancy on contraceptive [Unknown]
  - Abortion [Unknown]

NARRATIVE: CASE EVENT DATE: 20150815
